FAERS Safety Report 9207015 (Version 1)
Quarter: 2013Q1

REPORT INFORMATION
  Report Type: Spontaneous
  Country: US (occurrence: None)
  Receive Date: 20120710
  Receipt Date: 20120710
  Transmission Date: 20140127
  Serious: Yes (Death)
  Sender: FDA-Public Use
  Company Number: 2011080159

PATIENT
  Age: 21 Year
  Sex: Male

DRUGS (3)
  1. CARISPRODOL [Suspect]
  2. ALCOHOL [Suspect]
  3. OXYCODONE [Suspect]

REACTIONS (2)
  - Alcohol poisoning [None]
  - Toxicity to various agents [None]
